FAERS Safety Report 5346637-7 (Version None)
Quarter: 2007Q2

REPORT INFORMATION
  Report Type: 
  Country: None (occurrence: None)
  Receive Date: 20070605
  Receipt Date: 20070524
  Transmission Date: 20071010
  Serious: Yes (Death, Hospitalization)
  Sender: FDA-Public Use
  Company Number: PFIZER INC-2007041234

PATIENT
  Age: 45 Year
  Sex: Female
  Weight: 51.4 kg

DRUGS (1)
  1. SU-011,248 [Suspect]
     Indication: UTERINE LEIOMYOSARCOMA
     Route: 048
     Dates: start: 20070503, end: 20070505

REACTIONS (8)
  - ABDOMINAL PAIN [None]
  - HYPERKALAEMIA [None]
  - HYPOTENSION [None]
  - HYPOXIA [None]
  - MYOCARDIAL ISCHAEMIA [None]
  - NAUSEA [None]
  - URETERIC OBSTRUCTION [None]
  - VOMITING [None]
